FAERS Safety Report 12307570 (Version 2)
Quarter: 2016Q3

REPORT INFORMATION
  Report Type: Spontaneous
  Country: DE (occurrence: DE)
  Receive Date: 20160426
  Receipt Date: 20160819
  Transmission Date: 20161109
  Serious: Yes (Life-Threatening, Hospitalization, Disabling, Other)
  Sender: FDA-Public Use
  Company Number: DE-TEVA-652818GER

PATIENT
  Age: 63 Year
  Sex: Male
  Weight: 114 kg

DRUGS (3)
  1. SIMVASTATIN. [Suspect]
     Active Substance: SIMVASTATIN
     Indication: HYPERCHOLESTEROLAEMIA
     Dosage: 40 MILLIGRAM DAILY; INTAKE 0-0-1
     Route: 048
     Dates: end: 201010
  2. ATORVASTATIN [Suspect]
     Active Substance: ATORVASTATIN
     Indication: CORONARY ARTERY DISEASE
     Dosage: 40 MILLIGRAM DAILY; INTAKE 0-0-1
     Route: 048
     Dates: end: 201308
  3. FLUVASTATIN [Suspect]
     Active Substance: FLUVASTATIN SODIUM
     Indication: HYPERCHOLESTEROLAEMIA
     Dosage: 40 MILLIGRAM DAILY; INTAKE 0-0-1
     Route: 048
     Dates: start: 201010, end: 201012

REACTIONS (7)
  - Myopathy [Recovering/Resolving]
  - Dyspnoea at rest [Not Recovered/Not Resolved]
  - Alveolitis [Recovering/Resolving]
  - Dyspnoea [Recovering/Resolving]
  - Atypical pneumonia [Recovering/Resolving]
  - Tendon rupture [Recovering/Resolving]
  - Walking disability [Recovering/Resolving]

NARRATIVE: CASE EVENT DATE: 201012
